FAERS Safety Report 9357542 (Version 2)
Quarter: 2013Q2

REPORT INFORMATION
  Report Type: Spontaneous
  Country: JP (occurrence: None)
  Receive Date: 20130617
  Receipt Date: 20130624
  Transmission Date: 20140414
  Serious: Yes (Other)
  Sender: FDA-Public Use
  Company Number: VAL_02562_2013

PATIENT
  Age: 39 Year
  Sex: Male

DRUGS (3)
  1. ROCALTROL [Suspect]
     Indication: PRODUCT USED FOR UNKNOWN INDICATION
     Dosage: 1X/WEEK UNTIL NOT CONTINUING??
     Route: 048
  2. CALCIUM CARBONATE [Concomitant]
  3. SEVELAMER HYDROCHLORIDE [Concomitant]

REACTIONS (2)
  - Peritoneal dialysis [None]
  - Calcinosis [None]
